FAERS Safety Report 14457300 (Version 3)
Quarter: 2018Q1

REPORT INFORMATION
  Report Type: Spontaneous
  Country: CH (occurrence: CH)
  Receive Date: 20180130
  Receipt Date: 20180214
  Transmission Date: 20180509
  Serious: Yes (Hospitalization, Other)
  Sender: FDA-Public Use
  Company Number: PHHY2018CH009463

PATIENT
  Age: 51 Year
  Sex: Male

DRUGS (11)
  1. REMERON [Concomitant]
     Active Substance: MIRTAZAPINE
     Indication: PRODUCT USED FOR UNKNOWN INDICATION
     Dosage: 0.5 DF (AT NIGHT), QD
     Route: 065
  2. ZESTRIL [Concomitant]
     Active Substance: LISINOPRIL
     Indication: PRODUCT USED FOR UNKNOWN INDICATION
     Dosage: 1 DF (IN MORNING), QD
     Route: 048
  3. TOREM [Concomitant]
     Active Substance: TORSEMIDE
     Indication: PRODUCT USED FOR UNKNOWN INDICATION
     Dosage: 0.5 DF (IN MORNING), QD
     Route: 048
  4. DERMOVATE [Concomitant]
     Active Substance: CLOBETASOL
     Indication: PRODUCT USED FOR UNKNOWN INDICATION
     Dosage: 1 DF (AT NIGHT), QD
     Route: 065
  5. ALDACTONE [Concomitant]
     Active Substance: SPIRONOLACTONE
     Indication: PRODUCT USED FOR UNKNOWN INDICATION
     Dosage: 1 DF (IN MORNING), QD
     Route: 048
  6. XARELTO [Concomitant]
     Active Substance: RIVAROXABAN
     Indication: PRODUCT USED FOR UNKNOWN INDICATION
     Dosage: 1 DF (IN MORNING), QD
     Route: 048
  7. BEPANTHENE [Concomitant]
     Active Substance: DEXPANTHENOL
     Indication: PRODUCT USED FOR UNKNOWN INDICATION
     Dosage: UNK UNK, BID
     Route: 045
  8. COSENTYX [Suspect]
     Active Substance: SECUKINUMAB
     Indication: PSORIASIS
     Dosage: 300 MG, UNK
     Route: 058
     Dates: start: 20170811
  9. PANTOPRAZOLE [Concomitant]
     Active Substance: PANTOPRAZOLE
     Indication: PRODUCT USED FOR UNKNOWN INDICATION
     Dosage: 1 DF (IN MORNING), QD
     Route: 065
  10. CHOLECALCIFEROL BIOGARAN [Concomitant]
     Indication: PRODUCT USED FOR UNKNOWN INDICATION
     Dosage: 10 ML (AT 7:00 AM) FOR 7 DAYS, QD
     Route: 048
  11. RHINOCORT [Concomitant]
     Active Substance: BUDESONIDE
     Indication: PRODUCT USED FOR UNKNOWN INDICATION
     Dosage: 32 UG (1 PUMP SPRAY), BID
     Route: 045

REACTIONS (9)
  - Bundle branch block right [Unknown]
  - Hypoalbuminaemia [Unknown]
  - Skin ulcer [Unknown]
  - C-reactive protein increased [Unknown]
  - Peripheral venous disease [Unknown]
  - Obesity [Unknown]
  - Tachycardia [Unknown]
  - Oedema [Unknown]
  - Arthropathy [Unknown]

NARRATIVE: CASE EVENT DATE: 201710
